FAERS Safety Report 8171571-7 (Version None)
Quarter: 2012Q1

REPORT INFORMATION
  Report Type: 
  Country: None (occurrence: None)
  Receive Date: 20120104
  Receipt Date: 20111111
  Transmission Date: 20120608
  Serious: No
  Sender: FDA-Public Use
  Company Number: 2011HGS-002780

PATIENT
  Age: 62 Year
  Sex: Female
  Weight: 64.8644 kg

DRUGS (7)
  1. NADOLOL [Concomitant]
  2. BENLYSTA [Suspect]
     Indication: SYSTEMIC LUPUS ERYTHEMATOSUS
     Dosage: INTRAVENOUS DRIP
     Route: 041
     Dates: start: 20110901
  3. HYDROXYCHLOROQUINE SULFATE [Concomitant]
  4. SYNTHROID (LEVOTHYROXINE SODIIUM) [Concomitant]
  5. WARFARIN SODIUM [Concomitant]
  6. PREDNISONE TAB [Concomitant]
  7. LISINOPRIL [Concomitant]

REACTIONS (1)
  - VESSEL PUNCTURE SITE HAEMATOMA [None]
